FAERS Safety Report 7358415-8 (Version None)
Quarter: 2011Q1

REPORT INFORMATION
  Report Type: 
  Country: None (occurrence: None)
  Receive Date: 20110317
  Receipt Date: 20110311
  Transmission Date: 20110831
  Serious: Yes (Other)
  Sender: FDA-Public Use
  Company Number: US-PFIZER INC-2004063307

PATIENT
  Sex: Female

DRUGS (2)
  1. NEURONTIN [Suspect]
     Indication: BACK PAIN
     Dosage: UNK
  2. NEURONTIN [Suspect]
     Indication: PAIN IN EXTREMITY

REACTIONS (14)
  - MYOCARDIAL INFARCTION [None]
  - MENTAL DISORDER [None]
  - HEPATIC FAILURE [None]
  - HALLUCINATION [None]
  - INJURY [None]
  - ANXIETY [None]
  - AMNESIA [None]
  - RENAL FAILURE [None]
  - CEREBROVASCULAR ACCIDENT [None]
  - EMOTIONAL DISTRESS [None]
  - THINKING ABNORMAL [None]
  - COMPLETED SUICIDE [None]
  - SUICIDAL IDEATION [None]
  - HYPERTENSION [None]
